FAERS Safety Report 8157233-0 (Version None)
Quarter: 2012Q1

REPORT INFORMATION
  Report Type: 
  Country: None (occurrence: None)
  Receive Date: 20120222
  Receipt Date: 20120222
  Transmission Date: 20120608
  Serious: Yes (Life-Threatening, Hospitalization, Other)
  Sender: FDA-Public Use
  Company Number: None

PATIENT
  Age: 59 Year
  Sex: Male
  Weight: 97.522 kg

DRUGS (2)
  1. ACTOS [Suspect]
     Indication: GLUCOSE TOLERANCE IMPAIRED
     Dosage: 30 MG TABS
     Route: 048
     Dates: start: 20060901, end: 20120208
  2. ACTOS [Suspect]
     Indication: DIABETES PROPHYLAXIS
     Dosage: 30 MG TABS
     Route: 048
     Dates: start: 20060901, end: 20120208

REACTIONS (4)
  - DRUG PRESCRIBING ERROR [None]
  - BLADDER MASS [None]
  - BLADDER NEOPLASM [None]
  - INCORRECT DRUG ADMINISTRATION DURATION [None]
